FAERS Safety Report 17953528 (Version 1)
Quarter: 2020Q2

REPORT INFORMATION
  Report Type: Spontaneous
  Country: CH (occurrence: CH)
  Receive Date: 20200628
  Receipt Date: 20200628
  Transmission Date: 20200714
  Serious: Yes (Other)
  Sender: FDA-Public Use
  Company Number: NVSC2020CH082049

PATIENT
  Sex: Female

DRUGS (2)
  1. HUMIRA [Suspect]
     Active Substance: ADALIMUMAB
     Indication: JUVENILE IDIOPATHIC ARTHRITIS
     Dosage: UNK UKN
     Route: 065
     Dates: start: 200710, end: 201709
  2. METHOTREXATE. [Suspect]
     Active Substance: METHOTREXATE
     Indication: JUVENILE IDIOPATHIC ARTHRITIS
     Dosage: UNK UKN
     Route: 065
     Dates: start: 200508, end: 200803

REACTIONS (4)
  - Cataract [Unknown]
  - Uveitis [Unknown]
  - Cystoid macular oedema [Unknown]
  - Keratopathy [Unknown]

NARRATIVE: CASE EVENT DATE: 20060327
